FAERS Safety Report 10983844 (Version 6)
Quarter: 2019Q1

REPORT INFORMATION
  Report Type: Spontaneous
  Country: FR (occurrence: FR)
  Receive Date: 20150403
  Receipt Date: 20190225
  Transmission Date: 20190417
  Serious: Yes (Death, Hospitalization, Other)
  Sender: FDA-Public Use
  Company Number: FR-PFIZER INC-2014132250

PATIENT
  Age: 40 Year
  Sex: Female
  Weight: 72 kg

DRUGS (15)
  1. FRAGMINE [Suspect]
     Active Substance: DALTEPARIN SODIUM
     Indication: PROPHYLAXIS
     Dosage: 5000 IU, DAILY
     Route: 058
     Dates: start: 20140314, end: 20140319
  2. PARACETAMOL PANPHARMA [Concomitant]
     Active Substance: ACETAMINOPHEN
     Dosage: 1 MG/DL, UNK
  3. LYRICA [Concomitant]
     Active Substance: PREGABALIN
     Dosage: 25 MG, UNK
  4. VALIUM [Concomitant]
     Active Substance: DIAZEPAM
     Dosage: 10 MG/ML, UNK
  5. ALPRAZOLAM MYLAN [Concomitant]
     Active Substance: ALPRAZOLAM
     Dosage: 0.25 MG, UNK
  6. DAFALGAN [Concomitant]
     Active Substance: ACETAMINOPHEN
     Dosage: 500 MG, UNK
  7. IXPRIM [Concomitant]
     Active Substance: ACETAMINOPHEN\TRAMADOL HYDROCHLORIDE
     Dosage: 37.5 MG, UNK
  8. INEXIUM /01479302/ [Concomitant]
     Active Substance: ESOMEPRAZOLE MAGNESIUM
     Dosage: 40 MG, UNK
  9. ATARAX [Concomitant]
     Active Substance: HYDROXYZINE HYDROCHLORIDE
     Dosage: 25 MG, UNK
  10. SODIUM CHLORIDE. [Concomitant]
     Active Substance: SODIUM CHLORIDE
     Dosage: UNK
  11. TIAPRIDAL [Concomitant]
     Active Substance: TIAPRIDE HYDROCHLORIDE
     Dosage: UNK
  12. HYDROCORTANCYL [Suspect]
     Active Substance: PREDNISONE
     Indication: CAUDA EQUINA SYNDROME
     Dosage: 5 ML, SINGLE
     Route: 037
     Dates: start: 20140313, end: 20140313
  13. METOCLOPRAMIDE HYDROCHLORIDE. [Concomitant]
     Active Substance: METOCLOPRAMIDE HYDROCHLORIDE
     Dosage: UNK
  14. CONTRAMAL [Concomitant]
     Active Substance: TRAMADOL HYDROCHLORIDE
     Dosage: 100 MG/ML, UNK
  15. PROFENID [Suspect]
     Active Substance: KETOPROFEN
     Indication: PAIN
     Dosage: 600 MG, DAILY
     Route: 042
     Dates: start: 20140313, end: 20140315

REACTIONS (7)
  - Central nervous system vasculitis [Fatal]
  - Cerebral haemorrhage [Fatal]
  - Intracranial hypotension [Fatal]
  - Contraindicated product administered [Fatal]
  - Cerebral haematoma [Fatal]
  - Cerebral disorder [Unknown]
  - Headache [Unknown]

NARRATIVE: CASE EVENT DATE: 201403
